FAERS Safety Report 9761260 (Version 1)
Quarter: 2013Q4

REPORT INFORMATION
  Report Type: Spontaneous
  Country: DE (occurrence: None)
  Receive Date: 20131212
  Receipt Date: 20131212
  Transmission Date: 20140711
  Serious: Yes (Hospitalization)
  Sender: FDA-Public Use
  Company Number: DE-LHC-2013067

PATIENT
  Age: 73 Year
  Sex: Male

DRUGS (1)
  1. CONOXIA [Suspect]
     Indication: CHRONIC OBSTRUCTIVE PULMONARY DISEASE
     Dosage: 2.5 L/MIN AT REST; 6L/MIN AT STRESS; 2.5 L/MIN AT NIGHT DURATION MORE THAN 16 HOURS/DAY, INHALATION
     Route: 055

REACTIONS (9)
  - Insomnia [None]
  - Headache [None]
  - Nausea [None]
  - Nervousness [None]
  - Bronchitis [None]
  - Paraesthesia [None]
  - Local swelling [None]
  - Feeling hot [None]
  - Erythema [None]
